FAERS Safety Report 6987652-7 (Version None)
Quarter: 2010Q3

REPORT INFORMATION
  Report Type: 
  Country: None (occurrence: None)
  Receive Date: 20100914
  Receipt Date: 20100831
  Transmission Date: 20110219
  Serious: Yes (Other)
  Sender: FDA-Public Use
  Company Number: DSA_43572_2010

PATIENT
  Sex: Female
  Weight: 78.9259 kg

DRUGS (16)
  1. BUPROPION HCL [Suspect]
     Indication: DEPRESSION
     Dosage: 150 MG QD ORAL
     Route: 048
     Dates: start: 20100614, end: 20100621
  2. PROTONIX [Concomitant]
  3. SINGULAIR [Concomitant]
  4. ADVAIR DISKUS 100/50 [Concomitant]
  5. MICRO-K [Concomitant]
  6. ALBUTEROL [Concomitant]
  7. LOMOTIL [Concomitant]
  8. SYNTHROID [Concomitant]
  9. AMBIEN [Concomitant]
  10. LOPRESSOR [Concomitant]
  11. NEURONTIN [Concomitant]
  12. CYMBALTA [Concomitant]
  13. ATIVAN [Concomitant]
  14. LOVASTATIN [Concomitant]
  15. GLUCOPHAGE [Concomitant]
  16. ALLEGRA [Concomitant]

REACTIONS (3)
  - DERMATITIS [None]
  - DRUG HYPERSENSITIVITY [None]
  - MULTIPLE DRUG OVERDOSE [None]
